FAERS Safety Report 7783105-7 (Version None)
Quarter: 2011Q3

REPORT INFORMATION
  Report Type: 
  Country: None (occurrence: None)
  Receive Date: 20110928
  Receipt Date: 20110912
  Transmission Date: 20111222
  Serious: Yes (Other)
  Sender: FDA-Public Use
  Company Number: GB-SANOFI-AVENTIS-2011SA059243

PATIENT
  Age: 35 Year
  Sex: Female

DRUGS (2)
  1. SOLOSTAR [Suspect]
     Indication: PRODUCT USED FOR UNKNOWN INDICATION
     Dates: start: 20110811
  2. LANTUS [Suspect]
     Indication: PRODUCT USED FOR UNKNOWN INDICATION
     Route: 051
     Dates: start: 20110811

REACTIONS (3)
  - DEVICE MALFUNCTION [None]
  - BLOOD GLUCOSE INCREASED [None]
  - DEVICE BREAKAGE [None]
